FAERS Safety Report 13379517 (Version 1)
Quarter: 2017Q1

REPORT INFORMATION
  Report Type: Spontaneous
  Country: IT (occurrence: IT)
  Receive Date: 20170328
  Receipt Date: 20170328
  Transmission Date: 20170429
  Serious: Yes (Hospitalization, Other)
  Sender: FDA-Public Use
  Company Number: IT-PFIZER INC-2017129109

PATIENT
  Age: 72 Year
  Sex: Female

DRUGS (14)
  1. DIBASE [Concomitant]
     Active Substance: CHOLECALCIFEROL
     Dosage: 20 GTT, UNK
     Route: 048
  2. TRITTICO [Concomitant]
     Active Substance: TRAZODONE HYDROCHLORIDE
     Dosage: UNK
  3. ALLOPURINOL. [Concomitant]
     Active Substance: ALLOPURINOL
     Dosage: UNK
  4. FEMARA [Concomitant]
     Active Substance: LETROZOLE
     Dosage: UNK
  5. ZITROMAX [Suspect]
     Active Substance: AZITHROMYCIN
     Indication: ANTIBIOTIC THERAPY
     Dosage: 500 MG, SINGLE
     Route: 042
     Dates: start: 20160404, end: 20160404
  6. LANSOX [Concomitant]
     Active Substance: LANSOPRAZOLE
     Dosage: UNK
  7. OXYCONTIN [Concomitant]
     Active Substance: OXYCODONE HYDROCHLORIDE
     Dosage: 40 MG, UNK
     Route: 048
  8. HALCION [Concomitant]
     Active Substance: TRIAZOLAM
     Dosage: UNK
  9. LOSARTAN POTASSIUM AND HYDROCHLOROTHIAZIDE [Concomitant]
     Active Substance: HYDROCHLOROTHIAZIDE\LOSARTAN POTASSIUM
     Dosage: UNK
  10. MOVICOL [Concomitant]
     Active Substance: POLYETHYLENE GLYCOL 3350\POTASSIUM CHLORIDE\SODIUM BICARBONATE\SODIUM CHLORIDE
     Dosage: UNK
  11. RIOPAN [Concomitant]
     Active Substance: MAGALDRATE
     Dosage: UNK
  12. SPIRIVA [Concomitant]
     Active Substance: TIOTROPIUM BROMIDE MONOHYDRATE
     Dosage: UNK
  13. SIMESTAT [Concomitant]
     Active Substance: ROSUVASTATIN CALCIUM
     Dosage: UNK
  14. DEPAKIN CHRONO [Concomitant]
     Active Substance: VALPROIC ACID
     Dosage: UNK

REACTIONS (5)
  - Anaphylactic reaction [Unknown]
  - Sepsis [Unknown]
  - Respiratory distress [Unknown]
  - Sopor [Unknown]
  - Erythema [Unknown]

NARRATIVE: CASE EVENT DATE: 20160404
